FAERS Safety Report 7902595-X (Version None)
Quarter: 2011Q4

REPORT INFORMATION
  Report Type: 
  Country: None (occurrence: None)
  Receive Date: 20111108
  Receipt Date: 20111024
  Transmission Date: 20120403
  Serious: Yes (Other)
  Sender: FDA-Public Use
  Company Number: PK-WATSON-2011-18157

PATIENT
  Age: 62 Year
  Sex: Male

DRUGS (2)
  1. RISPERIDONE [Suspect]
     Indication: INSOMNIA
     Dosage: 1 MG, DAILY TOOK FOR 2-3 WEEKS THEN REPLACED. RE-INTRODUCED AFTER 5 MONTHS AT 1MG/DAY THEN .5MG/DAY
  2. RISPERIDONE [Suspect]
     Indication: HYPOMANIA

REACTIONS (6)
  - DYSPNOEA [None]
  - STEREOTYPY [None]
  - TREMOR [None]
  - RESPIRATORY DYSKINESIA [None]
  - GRUNTING [None]
  - DYSKINESIA [None]
